FAERS Safety Report 8784694 (Version 1)
Quarter: 2012Q4

REPORT INFORMATION
  Report Type: Spontaneous
  Country: GB (occurrence: None)
  Receive Date: 20120831
  Receipt Date: 20120831
  Transmission Date: 20130627
  Serious: Yes (Hospitalization)
  Sender: FDA-Public Use
  Company Number: NSR_00647_2012

PATIENT
  Age: 45 Year
  Sex: Female

DRUGS (8)
  1. BACLOFEN [Suspect]
     Indication: SPINA BIFIDA
     Dosage: DF {via a Medtronic SynchroMed EL pump]
     Route: 037
  2. BACLOFEN [Suspect]
     Indication: MUSCLE SPASTICITY
     Dosage: DF {via a Medtronic SynchroMed EL pump]
     Route: 037
  3. BACLOFEN [Suspect]
     Indication: SPINA BIFIDA
     Dosage: DF Oral
     Route: 048
  4. BACLOFEN [Suspect]
     Indication: MUSCLE SPASTICITY
     Dosage: DF Oral
     Route: 048
  5. BACLOFEN [Suspect]
     Indication: SPINA BIFIDA
     Dosage: DF Intravenous bolus
     Route: 040
  6. BACLOFEN [Suspect]
     Indication: MUSCLE SPASTICITY
     Dosage: DF Intravenous bolus
     Route: 040
  7. BACLOFEN [Suspect]
     Indication: SPINA BIFIDA
     Dosage: DF Intrathecal
     Route: 037
  8. BACLOFEN [Suspect]
     Indication: MUSCLE SPASTICITY
     Dosage: DF Intrathecal
     Route: 037

REACTIONS (5)
  - Withdrawal syndrome [None]
  - Device failure [None]
  - Hyperhidrosis [None]
  - Tachycardia [None]
  - Muscle rigidity [None]
